FAERS Safety Report 8773707 (Version 1)
Quarter: 2012Q4

REPORT INFORMATION
  Report Type: 
  Country: US (occurrence: US)
  Receive Date: 20120907
  Receipt Date: 20120907
  Transmission Date: 20130627
  Serious: No
  Sender: FDA-Public Use
  Company Number: US-VERTEX PHARMACEUTICAL INC.-2012-020647

PATIENT

DRUGS (3)
  1. VX-770 [Suspect]
     Indication: CYSTIC FIBROSIS
     Dosage: 150 mg, bid
     Route: 048
     Dates: start: 20120606
  2. ENZYMES [Concomitant]
     Dosage: UNK
  3. VITAMINS                           /00067501/ [Concomitant]

REACTIONS (1)
  - Dyspepsia [Recovered/Resolved]
